FAERS Safety Report 4832051-7 (Version None)
Quarter: 2005Q4

REPORT INFORMATION
  Report Type: 
  Country: None (occurrence: None)
  Receive Date: 20051116
  Receipt Date: 20051110
  Transmission Date: 20060501
  Serious: Yes (Other)
  Sender: FDA-Public Use
  Company Number: 2005S1000234

PATIENT
  Age: 58 Year
  Sex: Male
  Weight: 70 kg

DRUGS (7)
  1. CUBICIN [Suspect]
     Indication: ENDOCARDITIS
     Dosage: 43 MG/KG;X1;IV
     Route: 042
     Dates: start: 20051001
  2. CUBICIN [Suspect]
     Indication: ENTEROCOCCAL BACTERAEMIA
     Dosage: 43 MG/KG;X1;IV
     Route: 042
     Dates: start: 20051001
  3. CUBICIN [Suspect]
     Indication: STAPHYLOCOCCAL BACTERAEMIA
     Dosage: 43 MG/KG;X1;IV
     Route: 042
     Dates: start: 20051001
  4. INSULIN [Concomitant]
  5. MORPHINE [Concomitant]
  6. BACLOFEN [Concomitant]
  7. PANTOPROZOLE [Concomitant]

REACTIONS (6)
  - ACCIDENTAL OVERDOSE [None]
  - DRUG ADMINISTRATION ERROR [None]
  - DYSKINESIA [None]
  - MEDICATION ERROR [None]
  - MOVEMENT DISORDER [None]
  - PYREXIA [None]
